FAERS Safety Report 8594584-X (Version None)
Quarter: 2012Q3

REPORT INFORMATION
  Report Type: 
  Country: None (occurrence: None)
  Receive Date: 20120801
  Receipt Date: 20120717
  Transmission Date: 20120928
  Serious: Yes (Other)
  Sender: FDA-Public Use
  Company Number: FK201202060

PATIENT
  Age: 51 Year
  Sex: Male

DRUGS (4)
  1. LEUCOVORIN CALCIUM [Suspect]
     Indication: COLON CANCER STAGE III
  2. FLUOROURACIL [Suspect]
     Indication: COLON CANCER STAGE III
  3. IRINOTECAN HCL [Suspect]
  4. TREBANANIB (TREBANANIB) (TREBANANIB) [Suspect]
     Indication: COLON CANCER STAGE III

REACTIONS (2)
  - GUILLAIN-BARRE SYNDROME [None]
  - OEDEMA PERIPHERAL [None]
